FAERS Safety Report 25444688 (Version 3)
Quarter: 2025Q2

REPORT INFORMATION
  Report Type: Spontaneous
  Country: JP (occurrence: JP)
  Receive Date: 20250617
  Receipt Date: 20250625
  Transmission Date: 20250717
  Serious: Yes (Death, Other)
  Sender: ALEXION PHARMACEUTICALS
  Company Number: JP-ASTRAZENECA-250059319_064320_P_1

PATIENT
  Age: 9 Decade

DRUGS (3)
  1. ANDEXXA [Suspect]
     Active Substance: ANDEXANET ALFA
     Indication: Mediastinal haematoma
  2. ELIQUIS [Concomitant]
     Active Substance: APIXABAN
     Route: 065
  3. CRYOPRECIPITATED ANTIHEMOPHILIC FACTOR (HUMAN) [Concomitant]
     Active Substance: CRYOPRECIPITATED ANTIHEMOPHILIC FACTOR (HUMAN)
     Indication: Mediastinal haematoma
     Route: 065

REACTIONS (1)
  - Myocardial infarction [Fatal]
